FAERS Safety Report 5015202-3 (Version None)
Quarter: 2006Q2

REPORT INFORMATION
  Report Type: 
  Country: None (occurrence: None)
  Receive Date: 20060425
  Receipt Date: 20060314
  Transmission Date: 20061013
  Serious: No
  Sender: FDA-Public Use
  Company Number: 223026

PATIENT
  Age: 50 Year
  Sex: Female
  Weight: 66.7 kg

DRUGS (5)
  1. XOLAIR [Suspect]
     Indication: ASTHMA
     Dosage: 300 MG, Q4W, SUBCUTANEOUS
     Route: 058
     Dates: start: 20050314, end: 20060320
  2. ADVAIR DISKUS 100/50 [Concomitant]
  3. THEOPHYLLINE [Concomitant]
  4. ALBUTEROL (ALBUTEROL/ALBUTEROL SULFATE) [Concomitant]
  5. REGLAN [Concomitant]

REACTIONS (2)
  - DRUG INEFFECTIVE [None]
  - WEIGHT INCREASED [None]
